FAERS Safety Report 17727425 (Version 1)
Quarter: 2020Q2

REPORT INFORMATION
  Report Type: Spontaneous
  Country: CA (occurrence: CA)
  Receive Date: 20200430
  Receipt Date: 20200430
  Transmission Date: 20200714
  Serious: Yes (Death, Hospitalization)
  Sender: FDA-Public Use
  Company Number: CA-ROCHE-2588179

PATIENT
  Sex: Female

DRUGS (4)
  1. COBIMETINIB. [Interacting]
     Active Substance: COBIMETINIB
     Indication: METASTATIC MALIGNANT MELANOMA
     Route: 048
  2. FLUCONAZOLE. [Suspect]
     Active Substance: FLUCONAZOLE
     Indication: PRODUCT USED FOR UNKNOWN INDICATION
     Route: 065
  3. HYDROCHLOROTHIAZIDE. [Concomitant]
     Active Substance: HYDROCHLOROTHIAZIDE
  4. ZELBORAF [Suspect]
     Active Substance: VEMURAFENIB
     Indication: METASTATIC MALIGNANT MELANOMA
     Route: 048

REACTIONS (12)
  - Headache [Fatal]
  - Diarrhoea [Fatal]
  - Drug interaction [Fatal]
  - Acrochordon [Fatal]
  - Mass [Fatal]
  - Vomiting [Fatal]
  - Dyspepsia [Fatal]
  - Nausea [Fatal]
  - Pain [Fatal]
  - Dizziness [Fatal]
  - Renal failure [Fatal]
  - Urosepsis [Fatal]
